FAERS Safety Report 9397531 (Version 3)
Quarter: 2014Q2

REPORT INFORMATION
  Report Type: Report from Study
  Country: CA (occurrence: CA)
  Receive Date: 20130712
  Receipt Date: 20140618
  Transmission Date: 20141212
  Serious: Yes (Hospitalization)
  Sender: FDA-Public Use
  Company Number: CA-JNJFOC-20130705454

PATIENT
  Sex: Female
  Weight: 63 kg

DRUGS (9)
  1. REMICADE [Suspect]
     Indication: CROHN^S DISEASE
     Route: 042
     Dates: start: 20140610
  2. REMICADE [Suspect]
     Indication: CROHN^S DISEASE
     Route: 042
     Dates: start: 20110621, end: 201311
  3. METHOTREXATE [Concomitant]
     Route: 065
  4. MORPHINE [Concomitant]
     Route: 048
  5. MORPHINE [Concomitant]
     Dosage: PM
     Route: 048
  6. WELLBUTRIN [Concomitant]
     Route: 048
  7. CYMBALTA [Concomitant]
     Route: 048
  8. NABILONE [Concomitant]
     Route: 048
  9. FENTANYL [Concomitant]
     Route: 065

REACTIONS (2)
  - Osteonecrosis [Unknown]
  - Necrosis ischaemic [Unknown]
